FAERS Safety Report 13616711 (Version 1)
Quarter: 2017Q2

REPORT INFORMATION
  Report Type: Spontaneous
  Country: US (occurrence: US)
  Receive Date: 20170606
  Receipt Date: 20170606
  Transmission Date: 20170830
  Serious: No
  Sender: FDA-Public Use
  Company Number: US-SA-2016SA114500

PATIENT
  Age: 68 Year
  Sex: Female

DRUGS (2)
  1. LANTUS SOLOSTAR [Suspect]
     Active Substance: INSULIN GLARGINE
     Indication: TYPE 2 DIABETES MELLITUS
     Dosage: 25 AM/20 PM
     Route: 065
  2. SOLOSTAR [Concomitant]
     Active Substance: DEVICE

REACTIONS (7)
  - Injection site erythema [Unknown]
  - Pharyngeal oedema [Unknown]
  - Injection site swelling [Unknown]
  - Product use issue [Unknown]
  - Insomnia [Unknown]
  - Dyspnoea [Unknown]
  - Chest discomfort [Unknown]
